FAERS Safety Report 9329881 (Version 1)
Quarter: 2013Q2

REPORT INFORMATION
  Report Type: Spontaneous
  Country: US (occurrence: US)
  Receive Date: 20130604
  Receipt Date: 20130604
  Transmission Date: 20140414
  Serious: Yes (Other)
  Sender: FDA-Public Use
  Company Number: US-SANOFI-AVENTIS-2013SA005220

PATIENT
  Age: 69 Year
  Sex: Male

DRUGS (5)
  1. LANTUS SOLOSTAR [Suspect]
     Indication: TYPE 2 DIABETES MELLITUS
     Dosage: PATIENT TAKES 50-60 UNITS ONCE DAILY.
  2. SOLOSTAR [Suspect]
  3. LANTUS [Suspect]
     Dosage: PATIENT TAKES 50-60 UNITS ONCE DAILY.
  4. HUMALOG [Concomitant]
  5. AZITHROMYCIN [Concomitant]

REACTIONS (2)
  - Sinus disorder [Unknown]
  - Upper respiratory tract infection [Unknown]
